FAERS Safety Report 6855092-7 (Version None)
Quarter: 2010Q3

REPORT INFORMATION
  Report Type: 
  Country: None (occurrence: None)
  Receive Date: 20100717
  Receipt Date: 20081125
  Transmission Date: 20110219
  Serious: Yes (Other)
  Sender: FDA-Public Use
  Company Number: US-PFIZER INC-2007108644

PATIENT
  Age: 56 Year
  Sex: Female
  Weight: 87.528 kg

DRUGS (2)
  1. CHANTIX [Suspect]
     Indication: SMOKING CESSATION THERAPY
     Dosage: 0.5 MG, 2X/DAY
     Route: 048
     Dates: start: 20060818, end: 20060824
  2. REBIF [Concomitant]
     Indication: MULTIPLE SCLEROSIS
     Dosage: UNK

REACTIONS (1)
  - MULTIPLE SCLEROSIS RELAPSE [None]
